FAERS Safety Report 12930896 (Version 2)
Quarter: 2017Q1

REPORT INFORMATION
  Report Type: Spontaneous
  Country: DE (occurrence: DE)
  Receive Date: 20161110
  Receipt Date: 20170303
  Transmission Date: 20170428
  Serious: Yes (Hospitalization)
  Sender: FDA-Public Use
  Company Number: DE-CELGENEUS-DEU-2016107839

PATIENT
  Age: 63 Year
  Sex: Male

DRUGS (1)
  1. VIDAZA [Suspect]
     Active Substance: AZACITIDINE
     Indication: MYELODYSPLASTIC SYNDROME
     Route: 058

REACTIONS (3)
  - Device dislocation [Recovered/Resolved]
  - Pleural effusion [Recovered/Resolved]
  - Malabsorption [Recovered/Resolved]

NARRATIVE: CASE EVENT DATE: 20160808
